FAERS Safety Report 5569930-1 (Version None)
Quarter: 2007Q4

REPORT INFORMATION
  Report Type: 
  Country: None (occurrence: None)
  Receive Date: 20071220
  Receipt Date: 20071213
  Transmission Date: 20080405
  Serious: Yes (Life-Threatening, Hospitalization)
  Sender: FDA-Public Use
  Company Number: JP-MERCK-0711USA02838

PATIENT
  Age: 24 Year
  Sex: Female

DRUGS (12)
  1. PEPCID [Suspect]
     Indication: ABDOMINAL PAIN UPPER
     Route: 051
     Dates: start: 20071108, end: 20071108
  2. PRIMPERAN INJ [Suspect]
     Indication: NAUSEA
     Route: 051
     Dates: start: 20071108, end: 20071108
  3. PRIMPERAN INJ [Suspect]
     Indication: VOMITING
     Route: 051
     Dates: start: 20071108, end: 20071108
  4. BFLUID [Suspect]
     Indication: ANOREXIA
     Route: 051
     Dates: start: 20071108, end: 20071108
  5. BFLUID [Suspect]
     Indication: DEHYDRATION
     Route: 051
     Dates: start: 20071108, end: 20071108
  6. BUSCOPAN [Suspect]
     Indication: ABDOMINAL PAIN UPPER
     Route: 051
     Dates: start: 20071108, end: 20071108
  7. SOLU-MEDROL [Suspect]
     Indication: ASTHMA
     Route: 051
     Dates: start: 20071108, end: 20071108
  8. SOLU-MEDROL [Suspect]
     Route: 051
     Dates: start: 20071108, end: 20071108
  9. BISOLVON [Suspect]
     Indication: ASTHMA
     Dates: start: 20071108, end: 20071108
  10. MEPTIN [Suspect]
     Indication: ASTHMA
     Dates: start: 20071108, end: 20071108
  11. VEEN F [Concomitant]
     Indication: DEHYDRATION
     Route: 041
     Dates: start: 20071108, end: 20071108
  12. BOSMIN [Concomitant]
     Indication: ASTHMA
     Route: 058
     Dates: start: 20071108, end: 20071108

REACTIONS (3)
  - ANAPHYLACTIC SHOCK [None]
  - RASH [None]
  - STATUS ASTHMATICUS [None]
